FAERS Safety Report 24158438 (Version 3)
Quarter: 2024Q3

REPORT INFORMATION
  Report Type: Report from Study
  Country: US (occurrence: US)
  Receive Date: 20240731
  Receipt Date: 20240823
  Transmission Date: 20241017
  Serious: Yes (Other)
  Sender: DECIPHERA PHARMACEUTICALS
  Company Number: US-DECIPHERA PHARMACEUTICALS LLC-2024US000642

PATIENT
  Age: 59 Year
  Sex: Female
  Weight: 57.9 kg

DRUGS (2)
  1. QINLOCK [Suspect]
     Active Substance: RIPRETINIB
     Indication: Gastrointestinal stromal tumour
     Dosage: 150 MILLIGRAM, QD
     Route: 048
     Dates: start: 20231012
  2. QINLOCK [Suspect]
     Active Substance: RIPRETINIB
     Dosage: UNK, DOSE INCREASED
     Dates: end: 2024

REACTIONS (3)
  - Metastases to liver [Unknown]
  - Drug ineffective [Unknown]
  - Extra dose administered [Unknown]
